FAERS Safety Report 20728187 (Version 1)
Quarter: 2022Q2

REPORT INFORMATION
  Report Type: Report from Study
  Country: US (occurrence: US)
  Receive Date: 20220420
  Receipt Date: 20220420
  Transmission Date: 20220721
  Serious: No
  Sender: FDA-Public Use
  Company Number: US-NOVARTISTESTPH-NVSC2022US091222

PATIENT
  Age: 81 Year
  Sex: Female

DRUGS (1)
  1. ENTRESTO [Suspect]
     Active Substance: SACUBITRIL\VALSARTAN
     Indication: Product used for unknown indication
     Dosage: 50 MG, BID (24/26 MG: 24.3 MG SACUBITRIL AND 25.7 MG VALSARTAN
     Route: 048
     Dates: start: 2017

REACTIONS (5)
  - Fluid retention [Unknown]
  - Weight increased [Unknown]
  - Dyspnoea [Unknown]
  - Swelling [Unknown]
  - Fatigue [Unknown]
